FAERS Safety Report 15567541 (Version 4)
Quarter: 2019Q1

REPORT INFORMATION
  Report Type: Spontaneous
  Country: US (occurrence: US)
  Receive Date: 20181030
  Receipt Date: 20190315
  Transmission Date: 20190417
  Serious: Yes (Hospitalization, Other)
  Sender: FDA-Public Use
  Company Number: US-PFIZER INC-2018440050

PATIENT
  Age: 23 Year
  Sex: Female

DRUGS (1)
  1. DEPO-PROVERA [Suspect]
     Active Substance: MEDROXYPROGESTERONE ACETATE
     Indication: CONTRACEPTION
     Dosage: 150 MG, SINGLE
     Route: 030
     Dates: start: 20181025, end: 20181025

REACTIONS (8)
  - Anaphylactic reaction [Recovering/Resolving]
  - Vomiting [Unknown]
  - Blood pressure increased [Unknown]
  - Nausea [Unknown]
  - Dyspnoea [Recovering/Resolving]
  - Asthenia [Unknown]
  - Dizziness [Unknown]
  - Chills [Unknown]

NARRATIVE: CASE EVENT DATE: 20181025
